FAERS Safety Report 12350767 (Version 1)
Quarter: 2016Q2

REPORT INFORMATION
  Report Type: Report from Study
  Country: CA (occurrence: CA)
  Receive Date: 20160510
  Receipt Date: 20160510
  Transmission Date: 20160815
  Serious: Yes (Hospitalization)
  Sender: FDA-Public Use
  Company Number: CA-JNJFOC-20160427776

PATIENT
  Age: 23 Year
  Sex: Female
  Weight: 65.7 kg

DRUGS (10)
  1. INSULIN LISPRO [Concomitant]
     Active Substance: INSULIN LISPRO
     Dosage: 3-5-7-0
     Route: 065
  2. GABAPENTIN. [Concomitant]
     Active Substance: GABAPENTIN
     Route: 048
  3. STELARA [Suspect]
     Active Substance: USTEKINUMAB
     Indication: TYPE 1 DIABETES MELLITUS
     Dosage: 10:04 HOURS
     Route: 058
     Dates: start: 20150422
  4. STELARA [Suspect]
     Active Substance: USTEKINUMAB
     Indication: TYPE 1 DIABETES MELLITUS
     Route: 058
     Dates: start: 20150817
  5. ESCITALOPRAM [Concomitant]
     Active Substance: ESCITALOPRAM OXALATE
     Route: 048
  6. EFFEXOR [Concomitant]
     Active Substance: VENLAFAXINE HYDROCHLORIDE
     Indication: NEURALGIA
     Route: 065
  7. STELARA [Suspect]
     Active Substance: USTEKINUMAB
     Indication: TYPE 1 DIABETES MELLITUS
     Dosage: ONCE
     Route: 058
  8. CLONAZEPAM. [Concomitant]
     Active Substance: CLONAZEPAM
     Route: 048
  9. LORAZEPAM. [Concomitant]
     Active Substance: LORAZEPAM
     Indication: ANXIETY
     Route: 065
     Dates: start: 2013
  10. INSULIN GLARGINE [Concomitant]
     Active Substance: INSULIN GLARGINE
     Dosage: ONCE IN THE MORNING
     Route: 058

REACTIONS (2)
  - Back pain [Recovered/Resolved with Sequelae]
  - Diabetic neuropathy [Recovered/Resolved with Sequelae]

NARRATIVE: CASE EVENT DATE: 20150510
